FAERS Safety Report 24248323 (Version 1)
Quarter: 2024Q3

REPORT INFORMATION
  Report Type: Spontaneous
  Country: US (occurrence: US)
  Receive Date: 20240826
  Receipt Date: 20240826
  Transmission Date: 20241017
  Serious: Yes (Other)
  Sender: CIPLA
  Company Number: US-CIPLA LTD.-2024US09085

PATIENT

DRUGS (2)
  1. LANREOTIDE ACETATE [Suspect]
     Active Substance: LANREOTIDE ACETATE
     Indication: Carcinoid tumour
     Dosage: UNK
     Route: 065
     Dates: start: 2013, end: 2021
  2. LANREOTIDE ACETATE [Suspect]
     Active Substance: LANREOTIDE ACETATE
     Indication: Carcinoid tumour of the gastrointestinal tract

REACTIONS (7)
  - Seizure [Unknown]
  - Dizziness [Unknown]
  - Skin lesion [Unknown]
  - Therapy cessation [Unknown]
  - Injection site nodule [Unknown]
  - Headache [Unknown]
  - Weight decreased [Unknown]
